FAERS Safety Report 21473433 (Version 1)
Quarter: 2022Q4

REPORT INFORMATION
  Report Type: Spontaneous
  Country: DK (occurrence: DK)
  Receive Date: 20221018
  Receipt Date: 20221018
  Transmission Date: 20230113
  Serious: Yes (Life-Threatening, Other)
  Sender: FDA-Public Use
  Company Number: DK-NOVARTISPH-NVSC2022DK233463

PATIENT
  Age: 33 Year
  Sex: Male

DRUGS (1)
  1. TERBINAFINE [Suspect]
     Active Substance: TERBINAFINE
     Indication: Product used for unknown indication
     Dosage: UNK(BDF-0096)
     Route: 065
     Dates: start: 20220425

REACTIONS (24)
  - Suicide attempt [Unknown]
  - Tourette^s disorder [Unknown]
  - Panic attack [Unknown]
  - Depression [Unknown]
  - Burning sensation [Unknown]
  - Thinking abnormal [Unknown]
  - Eye disorder [Unknown]
  - Dyspnoea [Unknown]
  - Dissociation [Unknown]
  - Suicidal ideation [Unknown]
  - Muscular weakness [Unknown]
  - Insomnia [Unknown]
  - Paranoia [Unknown]
  - Amnesia [Unknown]
  - Hallucination [Unknown]
  - Hypoaesthesia [Unknown]
  - Nightmare [Unknown]
  - Disturbance in attention [Unknown]
  - Fat tissue decreased [Unknown]
  - Ear disorder [Unknown]
  - Obsessive-compulsive disorder [Unknown]
  - Arthralgia [Unknown]
  - Anxiety [Unknown]
  - Alopecia [Unknown]
